FAERS Safety Report 5220217-6 (Version None)
Quarter: 2006Q4

REPORT INFORMATION
  Report Type: 
  Country: None (occurrence: None)
  Receive Date: 20061201
  Receipt Date: 20060721
  Transmission Date: 20070319
  Serious: No
  Sender: FDA-Public Use
  Company Number: 2006PV017977

PATIENT
  Age: 56 Year
  Sex: Female
  Weight: 122.4712 kg

DRUGS (4)
  1. BYETTA [Suspect]
     Indication: DIABETES MELLITUS NON-INSULIN-DEPENDENT
     Dosage: 5 MCG;BID;SC
     Route: 058
     Dates: start: 20060607
  2. HUMALIN [Concomitant]
  3. REGULAR INSULIN [Concomitant]
  4. PREMARIN [Concomitant]

REACTIONS (9)
  - ARTHROPOD BITE [None]
  - DYSGEUSIA [None]
  - HYPERHIDROSIS [None]
  - METRORRHAGIA [None]
  - OBSTRUCTIVE AIRWAYS DISORDER [None]
  - PRURITUS [None]
  - SKIN ODOUR ABNORMAL [None]
  - SWELLING [None]
  - WEIGHT DECREASED [None]
